FAERS Safety Report 5368045-5 (Version None)
Quarter: 2007Q2

REPORT INFORMATION
  Report Type: 
  Country: None (occurrence: None)
  Receive Date: 20070622
  Receipt Date: 20070620
  Transmission Date: 20071010
  Serious: Yes (Death, Hospitalization)
  Sender: FDA-Public Use
  Company Number: US-GILEAD-2007-0012495

PATIENT
  Sex: Male

DRUGS (3)
  1. HEPSERA [Suspect]
     Indication: HEPATITIS B
  2. ENTECAVIR [Concomitant]
     Indication: HEPATITIS B
  3. PREDNISONE TAB [Concomitant]
     Indication: HEPATITIS B

REACTIONS (1)
  - LACTIC ACIDOSIS [None]
